FAERS Safety Report 17783375 (Version 9)
Quarter: 2024Q4

REPORT INFORMATION
  Report Type: Spontaneous
  Country: US (occurrence: US)
  Receive Date: 20200514
  Receipt Date: 20241219
  Transmission Date: 20250114
  Serious: Yes (Other)
  Sender: PFIZER
  Company Number: US-PFIZER INC-2020192049

PATIENT
  Age: 78 Year
  Sex: Female
  Weight: 77.11 kg

DRUGS (2)
  1. IBRANCE [Suspect]
     Active Substance: PALBOCICLIB
     Indication: Breast cancer female
     Dosage: 3 PILLS EVERY WEEK
     Route: 048
  2. IBRANCE [Suspect]
     Active Substance: PALBOCICLIB
     Dosage: 125 MG, CYCLIC, Q DAY FOR 3WEEKS ON 1 WEEK OFF
     Route: 048

REACTIONS (6)
  - Second primary malignancy [Unknown]
  - Skin cancer [Unknown]
  - Intentional product misuse [Unknown]
  - Asthenia [Unknown]
  - Fatigue [Unknown]
  - Mass [Unknown]
